FAERS Safety Report 13058523 (Version 5)
Quarter: 2020Q3

REPORT INFORMATION
  Report Type: Other
  Country: CA (occurrence: CA)
  Receive Date: 20161223
  Receipt Date: 20200806
  Transmission Date: 20201102
  Serious: Yes (Other)
  Sender: FDA-Public Use
  Company Number: CA-APOTEX-2016AP015797

PATIENT
  Age: 24 Year
  Sex: Female

DRUGS (10)
  1. ENBREL [Suspect]
     Active Substance: ETANERCEPT
     Indication: RHEUMATOID ARTHRITIS
     Route: 065
  2. ARAVA [Concomitant]
     Active Substance: LEFLUNOMIDE
     Indication: PRODUCT USED FOR UNKNOWN INDICATION
     Route: 065
  3. PLAQUENIL                          /00072602/ [Concomitant]
     Active Substance: HYDROXYCHLOROQUINE DIPHOSPHATE
     Indication: PRODUCT USED FOR UNKNOWN INDICATION
     Route: 065
  4. XELJANZ [Concomitant]
     Active Substance: TOFACITINIB CITRATE
     Indication: PRODUCT USED FOR UNKNOWN INDICATION
     Route: 065
  5. APO?LEFLUNOMIDE [Suspect]
     Active Substance: LEFLUNOMIDE
     Indication: PRODUCT USED FOR UNKNOWN INDICATION
     Dosage: 10 MG, QD
     Route: 065
  6. HYDROXYCHLOROQUINE [Suspect]
     Active Substance: HYDROXYCHLOROQUINE
     Indication: PRODUCT USED FOR UNKNOWN INDICATION
     Dosage: 200 MG, QD
     Route: 065
  7. APO?PREDNISONE [Suspect]
     Active Substance: PREDNISONE
     Indication: PRODUCT USED FOR UNKNOWN INDICATION
     Route: 065
  8. HYDROXYCHLOROQUINE SULFATE. [Concomitant]
     Active Substance: HYDROXYCHLOROQUINE SULFATE
     Indication: PRODUCT USED FOR UNKNOWN INDICATION
     Dosage: UNK
     Route: 065
  9. METHOTREXATE. [Suspect]
     Active Substance: METHOTREXATE
     Indication: RHEUMATOID ARTHRITIS
     Dosage: 25 MG, Q.WK.
     Route: 048
  10. REMICADE [Suspect]
     Active Substance: INFLIXIMAB
     Indication: PRODUCT USED FOR UNKNOWN INDICATION
     Route: 065

REACTIONS (11)
  - Drug intolerance [Unknown]
  - Joint swelling [Unknown]
  - Synovitis [Unknown]
  - C-reactive protein increased [Unknown]
  - Rheumatoid factor positive [Unknown]
  - Drug ineffective [Unknown]
  - Rheumatoid arthritis [Unknown]
  - Drug hypersensitivity [Unknown]
  - Bone erosion [Unknown]
  - Injection site reaction [Unknown]
  - Fatigue [Unknown]
